FAERS Safety Report 12192984 (Version 2)
Quarter: 2016Q1

REPORT INFORMATION
  Report Type: Spontaneous
  Country: JP (occurrence: JP)
  Receive Date: 20160318
  Receipt Date: 20160321
  Transmission Date: 20160526
  Serious: Yes (Other)
  Sender: FDA-Public Use
  Company Number: PHJP2016JP005981

PATIENT
  Age: 28 Year
  Sex: Female

DRUGS (4)
  1. AZULENE [Suspect]
     Active Substance: AZULENE
     Indication: IMMUNOSUPPRESSION
     Dosage: 50 MG, QD
     Route: 065
  2. METHYLDOPA. [Concomitant]
     Active Substance: METHYLDOPA
     Indication: IMMUNOSUPPRESSION
     Dosage: 4 MG, QD
     Route: 065
  3. TACROLIMUS SANDOZ [Suspect]
     Active Substance: TACROLIMUS
     Indication: IMMUNOSUPPRESSION
     Dosage: 8 MG, QD
     Route: 065
  4. VALSARTAN. [Suspect]
     Active Substance: VALSARTAN
     Indication: PROTEINURIA
     Dosage: UNK
     Route: 048

REACTIONS (4)
  - Threatened labour [Unknown]
  - Product use issue [Unknown]
  - Maternal exposure during pregnancy [Unknown]
  - Premature delivery [Unknown]
